FAERS Safety Report 9138314 (Version 1)
Quarter: 2013Q1

REPORT INFORMATION
  Report Type: Spontaneous
  Country: JP (occurrence: JP)
  Receive Date: 20130305
  Receipt Date: 20130305
  Transmission Date: 20140127
  Serious: No
  Sender: FDA-Public Use
  Company Number: JP-009507513-1104USA03644

PATIENT
  Age: 64 Year
  Sex: Male

DRUGS (1)
  1. FINASTERIDE [Suspect]
     Dosage: 1 DF, QD
     Route: 048

REACTIONS (4)
  - Hepatic steatosis [Unknown]
  - Aspartate aminotransferase increased [Unknown]
  - Alanine aminotransferase increased [Unknown]
  - Gamma-glutamyltransferase increased [Unknown]
